FAERS Safety Report 13145134 (Version 2)
Quarter: 2017Q3

REPORT INFORMATION
  Report Type: Spontaneous
  Country: US (occurrence: US)
  Receive Date: 20170124
  Receipt Date: 20170929
  Transmission Date: 20171127
  Serious: Yes (Hospitalization, Other)
  Sender: FDA-Public Use
  Company Number: US-PFIZER INC-2017028476

PATIENT
  Age: 70 Year
  Sex: Female
  Weight: 66 kg

DRUGS (2)
  1. RAPAMUNE [Suspect]
     Active Substance: SIROLIMUS
     Indication: LIVER TRANSPLANT
     Dosage: 3 MG, ALTERNATE DAY (EVERY OTHER DAY)
     Route: 048
  2. RAPAMUNE [Suspect]
     Active Substance: SIROLIMUS
     Dosage: 2 MG, DAILY
     Route: 048

REACTIONS (11)
  - Vomiting [Recovered/Resolved]
  - Renal disorder [Recovered/Resolved]
  - Nausea [Recovered/Resolved]
  - Drug dose omission [Recovered/Resolved]
  - Dehydration [Recovered/Resolved]
  - Gastroenteritis sapovirus [Recovered/Resolved]
  - Immune system disorder [Recovered/Resolved]
  - Acidosis [Unknown]
  - Gastroenteritis sapovirus [Recovered/Resolved]
  - Dehydration [Recovered/Resolved]
  - Renal disorder [Recovered/Resolved]

NARRATIVE: CASE EVENT DATE: 2017
